FAERS Safety Report 12297075 (Version 1)
Quarter: 2016Q2

REPORT INFORMATION
  Report Type: Spontaneous
  Country: TR (occurrence: TR)
  Receive Date: 20160422
  Receipt Date: 20160422
  Transmission Date: 20160815
  Serious: Yes (Other)
  Sender: FDA-Public Use
  Company Number: TR-BAYER-2016-076258

PATIENT
  Age: 69 Year
  Sex: Female

DRUGS (2)
  1. ACETYLSALICYLIC ACID({=100 MG) [Suspect]
     Active Substance: ASPIRIN
  2. HYDROXYUREA. [Suspect]
     Active Substance: HYDROXYUREA

REACTIONS (1)
  - Neutropenia [Unknown]
